FAERS Safety Report 15991328 (Version 2)
Quarter: 2019Q4

REPORT INFORMATION
  Report Type: Report from Study
  Country: US (occurrence: US)
  Receive Date: 20190221
  Receipt Date: 20191212
  Transmission Date: 20200122
  Serious: No
  Sender: FDA-Public Use
  Company Number: PHHY2018US068508

PATIENT
  Age: 58 Year
  Sex: Female

DRUGS (1)
  1. GILENYA [Suspect]
     Active Substance: FINGOLIMOD HYDROCHLORIDE
     Indication: MULTIPLE SCLEROSIS
     Dosage: UNK, QD
     Route: 048

REACTIONS (14)
  - Lymphocyte count decreased [Unknown]
  - Dyspnoea [Unknown]
  - Muscular weakness [Unknown]
  - Lumbar radiculopathy [Unknown]
  - Hypoaesthesia [Unknown]
  - Skin papilloma [Unknown]
  - Vitamin D deficiency [Unknown]
  - Angular cheilitis [Unknown]
  - Intertrigo [Unknown]
  - Neck pain [Unknown]
  - Melanocytic naevus [Unknown]
  - Visual impairment [Recovered/Resolved]
  - Dysaesthesia [Unknown]
  - Pain in jaw [Unknown]

NARRATIVE: CASE EVENT DATE: 20170901
